FAERS Safety Report 17492304 (Version 1)
Quarter: 2020Q1

REPORT INFORMATION
  Report Type: Report from Study
  Country: DE (occurrence: DE)
  Receive Date: 20200304
  Receipt Date: 20200304
  Transmission Date: 20200409
  Serious: Yes (Disabling)
  Sender: FDA-Public Use
  Company Number: DE-TEVA-2020-DE-1194028

PATIENT
  Age: 49 Year
  Sex: Male

DRUGS (1)
  1. METOPROLOL. [Suspect]
     Active Substance: METOPROLOL
     Indication: CARDIAC FAILURE
     Dosage: ROUTE OF ADMINISTRATION : ORAL .
     Route: 048

REACTIONS (2)
  - Sensory loss [Unknown]
  - Intermittent claudication [Unknown]

NARRATIVE: CASE EVENT DATE: 2013
